FAERS Safety Report 17515779 (Version 1)
Quarter: 2020Q1

REPORT INFORMATION
  Report Type: Spontaneous
  Country: GB (occurrence: GB)
  Receive Date: 20200309
  Receipt Date: 20200309
  Transmission Date: 20200409
  Serious: Yes (Disabling, Other)
  Sender: FDA-Public Use
  Company Number: GB-ACCORD-175140

PATIENT
  Age: 41 Year
  Sex: Female
  Weight: 61.59 kg

DRUGS (1)
  1. SERTRALINE [Suspect]
     Active Substance: SERTRALINE HYDROCHLORIDE
     Indication: DEPRESSION
     Route: 048
     Dates: start: 20191015, end: 20200113

REACTIONS (7)
  - Headache [Recovering/Resolving]
  - Bruxism [Recovering/Resolving]
  - Paraesthesia [Recovering/Resolving]
  - Insomnia [Recovering/Resolving]
  - Influenza like illness [Recovering/Resolving]
  - Skin lesion [Recovering/Resolving]
  - Tinnitus [Recovering/Resolving]

NARRATIVE: CASE EVENT DATE: 20191219
